FAERS Safety Report 7563298-7 (Version None)
Quarter: 2011Q2

REPORT INFORMATION
  Report Type: 
  Country: None (occurrence: None)
  Receive Date: 20110622
  Receipt Date: 20090820
  Transmission Date: 20111010
  Serious: Yes (Other)
  Sender: FDA-Public Use
  Company Number: A0804432A

PATIENT
  Age: 64 Year
  Sex: Female
  Weight: 73.6 kg

DRUGS (4)
  1. DIOVAN HCT [Concomitant]
  2. AVANDIA [Suspect]
     Indication: DIABETES MELLITUS
     Dosage: 4MG TWICE PER DAY
     Route: 048
     Dates: start: 19990101
  3. GLYBURIDE [Concomitant]
  4. AVANDAMET [Suspect]
     Indication: DIABETES MELLITUS
     Dosage: 1TAB PER DAY
     Route: 048
     Dates: start: 20030101, end: 20060101

REACTIONS (2)
  - CARDIAC FAILURE CONGESTIVE [None]
  - DEPRESSION [None]
